FAERS Safety Report 25235457 (Version 1)
Quarter: 2025Q2

REPORT INFORMATION
  Report Type: Spontaneous
  Country: GB (occurrence: None)
  Receive Date: 20250424
  Receipt Date: 20250424
  Transmission Date: 20250717
  Serious: Yes (Hospitalization, Disabling, Other)
  Sender: FDA-CTU
  Company Number: None

PATIENT
  Age: 29 Year
  Sex: Male
  Weight: 95 kg

DRUGS (3)
  1. CITALOPRAM [Suspect]
     Active Substance: CITALOPRAM
     Indication: Stress
  2. CREATINE [Concomitant]
     Active Substance: CREATINE
  3. WHEY [Concomitant]
     Active Substance: WHEY

REACTIONS (10)
  - Sexual dysfunction [None]
  - Genital hypoaesthesia [None]
  - Anorgasmia [None]
  - Erectile dysfunction [None]
  - Semen volume decreased [None]
  - Cognitive disorder [None]
  - Emotional disorder [None]
  - Anhedonia [None]
  - Suicidal ideation [None]
  - Electric shock sensation [None]

NARRATIVE: CASE EVENT DATE: 20220310
